FAERS Safety Report 7707009-0 (Version None)
Quarter: 2011Q3

REPORT INFORMATION
  Report Type: 
  Country: None (occurrence: None)
  Receive Date: 20110824
  Receipt Date: 20110819
  Transmission Date: 20111222
  Serious: No
  Sender: FDA-Public Use
  Company Number: US-PFIZER INC-2011154585

PATIENT
  Sex: Male
  Weight: 83.9 kg

DRUGS (8)
  1. DILTIAZEM [Concomitant]
     Indication: HYPERTENSION
     Dosage: 160 MG, 1X/DAY
  2. GABAPENTIN [Suspect]
     Indication: NEUROPATHY PERIPHERAL
     Dosage: UNK
     Dates: start: 20010101, end: 20100101
  3. GABAPENTIN [Suspect]
     Dosage: 400 MG, DAILY
     Route: 048
     Dates: start: 20070104, end: 20100510
  4. ASPIRIN [Concomitant]
     Dosage: 81 MG
  5. PAROXETINE [Concomitant]
     Indication: ANXIETY
     Dosage: 20 MG, 1X/DAY
  6. GABAPENTIN [Concomitant]
     Dosage: UNK
     Dates: start: 20080505, end: 20100422
  7. SIMVASTATIN [Concomitant]
     Indication: BLOOD CHOLESTEROL INCREASED
     Dosage: 20 MG, 1X/DAY
  8. ROPINIROLE [Concomitant]
     Indication: RESTLESS LEGS SYNDROME
     Dosage: 3.25 MG, 1X/DAY

REACTIONS (1)
  - FEELING ABNORMAL [None]
